FAERS Safety Report 15170197 (Version 1)
Quarter: 2018Q3

REPORT INFORMATION
  Report Type: Spontaneous
  Country: BE (occurrence: BE)
  Receive Date: 20180720
  Receipt Date: 20180720
  Transmission Date: 20181010
  Serious: Yes (Life-Threatening, Hospitalization)
  Sender: FDA-Public Use
  Company Number: BE-ACCORD-069671

PATIENT
  Age: 64 Year
  Sex: Female
  Weight: 52 kg

DRUGS (7)
  1. LEVOTHYROXINE. [Concomitant]
     Active Substance: LEVOTHYROXINE
     Indication: HYPOTHYROIDISM
     Route: 065
     Dates: start: 1987
  2. BETAHISTINE [Concomitant]
     Active Substance: BETAHISTINE
     Indication: VERTIGO
     Route: 065
     Dates: start: 2000
  3. BEFACT [Concomitant]
     Route: 065
     Dates: start: 2000
  4. CAPECITABINE. [Suspect]
     Active Substance: CAPECITABINE
     Indication: PANCREATIC CARCINOMA METASTATIC
     Route: 048
     Dates: start: 20171020
  5. PANTOMED [Concomitant]
     Route: 065
     Dates: start: 201709
  6. FLUOXETINE [Concomitant]
     Active Substance: FLUOXETINE HYDROCHLORIDE
     Indication: DEPRESSION
     Route: 065
     Dates: start: 1987
  7. IMODIUM [Concomitant]
     Active Substance: LOPERAMIDE HYDROCHLORIDE
     Indication: DIARRHOEA
     Route: 065
     Dates: start: 20171109

REACTIONS (2)
  - General physical health deterioration [Recovering/Resolving]
  - Off label use [Unknown]

NARRATIVE: CASE EVENT DATE: 20171130
